FAERS Safety Report 6058272-6 (Version None)
Quarter: 2009Q1

REPORT INFORMATION
  Report Type: 
  Country: None (occurrence: None)
  Receive Date: 20090123
  Receipt Date: 20080411
  Transmission Date: 20090719
  Serious: Yes (Hospitalization)
  Sender: FDA-Public Use
  Company Number: GXBR2008US00629

PATIENT
  Age: 83 Year
  Sex: Male
  Weight: 77.1 kg

DRUGS (13)
  1. AMIODARONE HCL [Suspect]
     Indication: ATRIAL FIBRILLATION
     Dosage: 200 MG, QD, ORAL
     Route: 048
     Dates: start: 20060101, end: 20071101
  2. COUMADIN [Concomitant]
  3. ALTACE [Concomitant]
  4. VYTORIN [Concomitant]
  5. ACTONEL [Concomitant]
  6. FEXOFENADINE HYDROCHLORIDE [Concomitant]
  7. LUMIGAN [Concomitant]
  8. NEXIUM [Concomitant]
  9. FOSAMAX [Concomitant]
  10. NEURONTIN [Concomitant]
  11. LIDODERM [Concomitant]
  12. MORPHINE [Concomitant]
  13. DARVOCET-N(DEXTOPROPOXYPHENE NAPSILATE, PARACETAMOL) [Concomitant]

REACTIONS (23)
  - ANXIETY [None]
  - ARTHRALGIA [None]
  - ASTHENIA [None]
  - BACK PAIN [None]
  - BLOOD THYROID STIMULATING HORMONE DECREASED [None]
  - DEPRESSION [None]
  - DYSPNOEA EXERTIONAL [None]
  - FALL [None]
  - FATIGUE [None]
  - GAIT DISTURBANCE [None]
  - HYPERHIDROSIS [None]
  - MUSCULAR WEAKNESS [None]
  - NEUROPATHY PERIPHERAL [None]
  - PAIN [None]
  - PARAESTHESIA [None]
  - POSITIVE ROMBERGISM [None]
  - RIB FRACTURE [None]
  - SENSATION OF HEAVINESS [None]
  - THORACIC VERTEBRAL FRACTURE [None]
  - TREMOR [None]
  - VERTIGO [None]
  - VISION BLURRED [None]
  - WEIGHT DECREASED [None]
